FAERS Safety Report 5159400-7 (Version None)
Quarter: 2006Q4

REPORT INFORMATION
  Report Type: 
  Country: None (occurrence: None)
  Receive Date: 20060918
  Receipt Date: 20060727
  Transmission Date: 20070319
  Serious: Yes (Other)
  Sender: FDA-Public Use
  Company Number: US-JNJFOC-20060800503

PATIENT
  Age: 24 Year
  Sex: Female
  Weight: 120.2032 kg

DRUGS (2)
  1. ORTHO EVRA [Suspect]
     Indication: CONTRACEPTION
     Dates: end: 20030328
  2. ORTHO EVRA [Suspect]
     Indication: MENSTRUAL DISORDER
     Dates: end: 20030328

REACTIONS (2)
  - CELLULITIS [None]
  - DEEP VEIN THROMBOSIS [None]
